FAERS Safety Report 4297649-6 (Version None)
Quarter: 2004Q1

REPORT INFORMATION
  Report Type: 
  Country: None (occurrence: None)
  Receive Date: 20040217
  Receipt Date: 20040217
  Transmission Date: 20041129
  Serious: Yes (Death)
  Sender: FDA-Public Use
  Company Number: None

PATIENT
  Sex: Male
  Weight: 88.4514 kg

DRUGS (2)
  1. PAXIL [Suspect]
     Indication: ANXIETY
     Dosage: 50 MG 1 X DAILY ORAL
     Route: 048
     Dates: start: 20020516, end: 20021202
  2. PAXIL [Suspect]
     Indication: PANIC DISORDER
     Dosage: 50 MG 1 X DAILY ORAL
     Route: 048
     Dates: start: 20020516, end: 20021202

REACTIONS (12)
  - AGITATION [None]
  - ASTHENIA [None]
  - COMMUNICATION DISORDER [None]
  - CRYING [None]
  - DISTURBANCE IN ATTENTION [None]
  - FEELING ABNORMAL [None]
  - GUN SHOT WOUND [None]
  - HYPERHIDROSIS [None]
  - INSOMNIA [None]
  - INTENTIONAL SELF-INJURY [None]
  - MOVEMENT DISORDER [None]
  - TREMOR [None]
